FAERS Safety Report 17068142 (Version 1)
Quarter: 2019Q4

REPORT INFORMATION
  Report Type: Other
  Country: FR (occurrence: FR)
  Receive Date: 20191122
  Receipt Date: 20191122
  Transmission Date: 20200122
  Serious: Yes (Other)
  Sender: FDA-Public Use
  Company Number: FR-CELLTRION INC.-2019FR026579

PATIENT

DRUGS (1)
  1. TRUXIMA [Suspect]
     Active Substance: RITUXIMAB-ABBS
     Indication: MUSCULAR WEAKNESS
     Dosage: 1000 MG
     Route: 041
     Dates: start: 20171018, end: 20180514

REACTIONS (2)
  - Product use in unapproved indication [Unknown]
  - Cervix carcinoma [Recovered/Resolved with Sequelae]

NARRATIVE: CASE EVENT DATE: 201904
